FAERS Safety Report 10890618 (Version 2)
Quarter: 2015Q2

REPORT INFORMATION
  Report Type: Spontaneous
  Country: IL (occurrence: IL)
  Receive Date: 20150304
  Receipt Date: 20150402
  Transmission Date: 20150821
  Serious: Yes (Hospitalization)
  Sender: FDA-Public Use
  Company Number: IL-IPSEN BIOPHARMACEUTICALS, INC.-2015-3398

PATIENT
  Age: 74 Year
  Sex: Male

DRUGS (3)
  1. INSULIN [Concomitant]
     Active Substance: INSULIN NOS
     Indication: DIABETES MELLITUS
     Dosage: NOT REPORTED
     Route: 065
  2. SOMATULINE AUTOGEL [Suspect]
     Active Substance: LANREOTIDE ACETATE
     Dosage: 120MG
     Route: 065
     Dates: start: 20150324
  3. SOMATULINE AUTOGEL [Suspect]
     Active Substance: LANREOTIDE ACETATE
     Indication: CARCINOID SYNDROME
     Dosage: 120MG
     Route: 065
     Dates: start: 20150224

REACTIONS (2)
  - Blood glucose decreased [Unknown]
  - Malaise [Unknown]

NARRATIVE: CASE EVENT DATE: 20150224
